FAERS Safety Report 21650598 (Version 2)
Quarter: 2022Q4

REPORT INFORMATION
  Report Type: Spontaneous
  Country: US (occurrence: US)
  Receive Date: 20221128
  Receipt Date: 20221216
  Transmission Date: 20230113
  Serious: No
  Sender: FDA-Public Use
  Company Number: US-ALKERMES INC.-ALK-2022-005683

PATIENT
  Sex: Male

DRUGS (2)
  1. VIVITROL [Suspect]
     Active Substance: NALTREXONE
     Indication: Drug dependence
     Dosage: 380 MILLIGRAM Q26D
     Route: 030
     Dates: start: 20221118
  2. PROZAC [Concomitant]
     Active Substance: FLUOXETINE HYDROCHLORIDE
     Indication: Depression
     Dosage: UNK
     Route: 065

REACTIONS (9)
  - Off label use [Unknown]
  - Neurotransmitter level altered [Unknown]
  - Drug ineffective [Unknown]
  - Anhedonia [Unknown]
  - Emotional poverty [Unknown]
  - Apathy [Unknown]
  - Affect lability [Unknown]
  - Asthenia [Unknown]
  - Decreased appetite [Unknown]
